FAERS Safety Report 9408347 (Version 2)
Quarter: 2013Q4

REPORT INFORMATION
  Report Type: Spontaneous
  Country: FR (occurrence: FR)
  Receive Date: 20130718
  Receipt Date: 20131029
  Transmission Date: 20140711
  Serious: Yes (Hospitalization)
  Sender: FDA-Public Use
  Company Number: FR-SANOFI-AVENTIS-2013SA070433

PATIENT
  Age: 80 Year
  Sex: Male

DRUGS (10)
  1. LOVENOX [Suspect]
     Indication: PRODUCT USED FOR UNKNOWN INDICATION
     Route: 058
     Dates: start: 20130605, end: 20130607
  2. VANCOMYCIN [Suspect]
     Indication: DEVICE RELATED INFECTION
     Route: 042
     Dates: start: 20130530, end: 20130606
  3. DOMPERIDONE [Concomitant]
     Route: 048
     Dates: start: 20130530
  4. INEXIUM [Concomitant]
     Route: 048
     Dates: start: 20130530
  5. LEVOTHYROX [Concomitant]
     Route: 048
  6. PARACETAMOL [Concomitant]
     Route: 048
     Dates: start: 20130531
  7. SERETIDE [Concomitant]
     Route: 055
  8. SPIRIVA [Concomitant]
     Route: 055
  9. UN-ALFA [Concomitant]
     Route: 048
  10. LAROSCORBINE [Concomitant]
     Route: 042
     Dates: start: 20130604

REACTIONS (3)
  - Renal failure acute [Recovered/Resolved]
  - Oliguria [Recovered/Resolved]
  - Renal tubular necrosis [Recovered/Resolved]
